FAERS Safety Report 25652209 (Version 1)
Quarter: 2025Q3

REPORT INFORMATION
  Report Type: Spontaneous
  Country: EU (occurrence: EU)
  Receive Date: 20250807
  Receipt Date: 20250807
  Transmission Date: 20251020
  Serious: Yes (Other)
  Sender: CELLTRION
  Company Number: EU-ORESUND-25OPAJY0325P

PATIENT

DRUGS (4)
  1. RITUXIMAB [Suspect]
     Active Substance: RITUXIMAB
     Indication: Immune-mediated myositis
     Route: 042
  2. ATORVASTATIN [Suspect]
     Active Substance: ATORVASTATIN
     Indication: Product used for unknown indication
  3. PREDNISOLONE [Suspect]
     Active Substance: PREDNISOLONE
     Indication: Immune-mediated myositis
  4. METHOTREXATE [Suspect]
     Active Substance: METHOTREXATE
     Indication: Immune-mediated myositis
     Route: 048

REACTIONS (12)
  - Blood creatine phosphokinase increased [Unknown]
  - Immune-mediated myositis [Unknown]
  - Necrosis [Unknown]
  - Autoantibody positive [Unknown]
  - Myopathy [Unknown]
  - Atrophy [Unknown]
  - Fat redistribution [Unknown]
  - Muscular weakness [Unknown]
  - Therapy change [Unknown]
  - Drug ineffective [Unknown]
  - Off label use [Unknown]
  - Intentional product use issue [Unknown]
